FAERS Safety Report 9480599 (Version 1)
Quarter: 2013Q3

REPORT INFORMATION
  Report Type: Spontaneous
  Country: US (occurrence: US)
  Receive Date: 20130828
  Receipt Date: 20130828
  Transmission Date: 20140515
  Serious: Yes (Hospitalization, Other)
  Sender: FDA-Public Use
  Company Number: US-AMGEN-KDL107609

PATIENT
  Age: 71 Year
  Sex: Female

DRUGS (1)
  1. ENBREL [Suspect]
     Indication: PSORIATIC ARTHROPATHY
     Dosage: 25 MG, 2 TIMES/WK
     Route: 058
     Dates: start: 20030314, end: 20030909

REACTIONS (22)
  - Knee arthroplasty [Unknown]
  - Shoulder arthroplasty [Unknown]
  - Myocardial infarction [Unknown]
  - Coronary artery disease [Unknown]
  - Anaemia [Unknown]
  - Transfusion reaction [Unknown]
  - Cerebrovascular accident [Unknown]
  - Blood pressure increased [Unknown]
  - Herpes zoster [Unknown]
  - Urinary tract infection [Unknown]
  - Sinusitis [Unknown]
  - Chills [Unknown]
  - Psoriasis [Unknown]
  - Condition aggravated [Unknown]
  - Periodontitis [Unknown]
  - Fungal infection [Unknown]
  - Dental caries [Unknown]
  - Pyrexia [Unknown]
  - Drug ineffective [Unknown]
  - Skin discolouration [Unknown]
  - Fall [Unknown]
  - Contusion [Unknown]
